FAERS Safety Report 7102035-7 (Version None)
Quarter: 2010Q4

REPORT INFORMATION
  Report Type: 
  Country: None (occurrence: None)
  Receive Date: 20101115
  Receipt Date: 20101110
  Transmission Date: 20110411
  Serious: Yes (Other)
  Sender: FDA-Public Use
  Company Number: DE-ROCHE-736103

PATIENT
  Sex: Female
  Weight: 86.7 kg

DRUGS (5)
  1. AVASTIN [Suspect]
     Indication: RENAL CELL CARCINOMA
     Route: 042
     Dates: start: 20090406, end: 20090908
  2. ROFERON-A [Concomitant]
     Indication: RENAL CELL CARCINOMA
     Route: 058
     Dates: start: 20090406, end: 20090822
  3. BISOPROLOL [Concomitant]
     Indication: HYPERTENSION
     Route: 048
  4. ALOPURINOL [Concomitant]
     Indication: HYPERURICAEMIA
     Route: 048
  5. METFORMIN HCL [Concomitant]
     Indication: DIABETES MELLITUS
     Route: 048

REACTIONS (2)
  - HAEMATURIA [None]
  - PROTEINURIA [None]
